FAERS Safety Report 8002296-6 (Version None)
Quarter: 2011Q4

REPORT INFORMATION
  Report Type: 
  Country: None (occurrence: None)
  Receive Date: 20111222
  Receipt Date: 20110309
  Transmission Date: 20120403
  Serious: No
  Sender: FDA-Public Use
  Company Number: US-GLAXOSMITHKLINE-A0917303A

PATIENT
  Age: 51 Year
  Sex: Male

DRUGS (2)
  1. COMMIT [Suspect]
     Indication: EX-TOBACCO USER
     Dates: start: 20101201
  2. NICODERM CQ [Suspect]
     Indication: EX-TOBACCO USER
     Dosage: 7MG PER DAY
     Route: 062
     Dates: start: 20100101

REACTIONS (5)
  - APPLICATION SITE ERYTHEMA [None]
  - HICCUPS [None]
  - APPLICATION SITE VESICLES [None]
  - DRUG ADMINISTRATION ERROR [None]
  - NAUSEA [None]
